FAERS Safety Report 9398811 (Version 3)
Quarter: 2013Q3

REPORT INFORMATION
  Report Type: Spontaneous
  Country: HK (occurrence: HK)
  Receive Date: 20130712
  Receipt Date: 20130823
  Transmission Date: 20140515
  Serious: No
  Sender: FDA-Public Use
  Company Number: HK-009507513-1307HKG005239

PATIENT
  Age: 85 Year
  Sex: Female

DRUGS (1)
  1. FOSAMAX [Suspect]
     Indication: OSTEOPOROSIS
     Dosage: UNK UNK, QW
     Route: 048
     Dates: start: 2003

REACTIONS (2)
  - Osteoporosis [Not Recovered/Not Resolved]
  - Bone pain [Unknown]
